FAERS Safety Report 10916726 (Version 2)
Quarter: 2015Q2

REPORT INFORMATION
  Report Type: Spontaneous
  Country: US (occurrence: US)
  Receive Date: 20150316
  Receipt Date: 20150524
  Transmission Date: 20150821
  Serious: No
  Sender: FDA-Public Use
  Company Number: US-JNJFOC-20140415636

PATIENT
  Age: 57 Year
  Sex: Male
  Weight: 88 kg

DRUGS (1)
  1. ZYTIGA [Suspect]
     Active Substance: ABIRATERONE ACETATE
     Indication: PROSTATE CANCER METASTATIC
     Route: 065
     Dates: start: 201404

REACTIONS (2)
  - Product difficult to swallow [Unknown]
  - Product size issue [Not Recovered/Not Resolved]

NARRATIVE: CASE EVENT DATE: 201404
